FAERS Safety Report 17250683 (Version 5)
Quarter: 2021Q4

REPORT INFORMATION
  Report Type: Spontaneous
  Country: BR (occurrence: BR)
  Receive Date: 20200109
  Receipt Date: 20211124
  Transmission Date: 20220304
  Serious: Yes (Other)
  Sender: FDA-Public Use
  Company Number: BR-GLAXOSMITHKLINE-BR2017GSK035086

PATIENT
  Age: 40 Year
  Sex: Female
  Weight: 68 kg

DRUGS (7)
  1. BENLYSTA [Suspect]
     Active Substance: BELIMUMAB
     Indication: Systemic lupus erythematosus
     Dosage: 720 MG, UNK
     Dates: start: 20170221
  2. BENLYSTA [Suspect]
     Active Substance: BELIMUMAB
     Dosage: 660 UNK, UNK
     Dates: end: 201905
  3. BENLYSTA [Suspect]
     Active Substance: BELIMUMAB
     Dosage: UNK
     Dates: start: 201912
  4. BENLYSTA [Suspect]
     Active Substance: BELIMUMAB
     Dosage: UNK
  5. AZATHIOPRINE [Concomitant]
     Active Substance: AZATHIOPRINE
     Indication: Product used for unknown indication
     Dosage: UNK
  6. REUQUINOL (HYDROXYCHLOROQUINE) [Concomitant]
     Indication: Product used for unknown indication
     Dosage: UNK
  7. PREDNISONE [Concomitant]
     Active Substance: PREDNISONE
     Indication: Product used for unknown indication

REACTIONS (10)
  - Systemic lupus erythematosus [Unknown]
  - Influenza [Unknown]
  - Weight decreased [Unknown]
  - Skin wound [Unknown]
  - Rash macular [Recovered/Resolved]
  - COVID-19 [Recovered/Resolved]
  - Overdose [Unknown]
  - Circumstance or information capable of leading to medication error [Unknown]
  - Inappropriate schedule of product administration [Unknown]
  - Product dose omission issue [Unknown]

NARRATIVE: CASE EVENT DATE: 20211024
